FAERS Safety Report 10157401 (Version 1)
Quarter: 2014Q2

REPORT INFORMATION
  Report Type: Spontaneous
  Country: US (occurrence: US)
  Receive Date: 20140507
  Receipt Date: 20140507
  Transmission Date: 20141212
  Serious: No
  Sender: FDA-Public Use
  Company Number: US-009507513-1405USA000046

PATIENT
  Sex: Female
  Weight: 131.7 kg

DRUGS (1)
  1. NEXPLANON [Suspect]
     Dosage: 1 ROD
     Route: 059
     Dates: start: 20140422

REACTIONS (4)
  - Device breakage [Unknown]
  - Device kink [Unknown]
  - Limb discomfort [Unknown]
  - No adverse event [Unknown]
